FAERS Safety Report 17683058 (Version 4)
Quarter: 2020Q2

REPORT INFORMATION
  Report Type: Report from Study
  Country: None (occurrence: US)
  Receive Date: 20200420
  Receipt Date: 20200620
  Transmission Date: 20200714
  Serious: Yes (Death, Hospitalization)
  Sender: FDA-Public Use
  Company Number: US-ABBVIE-20P-163-3366655-00

PATIENT
  Age: 50 Year
  Sex: Male

DRUGS (3)
  1. MICAFUNGIN. [Concomitant]
     Active Substance: MICAFUNGIN SODIUM
     Indication: PRODUCT USED FOR UNKNOWN INDICATION
  2. IMBRUVICA [Suspect]
     Active Substance: IBRUTINIB
     Indication: MANTLE CELL LYMPHOMA
     Route: 048
     Dates: start: 20200306, end: 20200519
  3. IMBRUVICA [Suspect]
     Active Substance: IBRUTINIB
     Route: 048
     Dates: start: 20200305

REACTIONS (13)
  - Endocarditis [Fatal]
  - Heart rate irregular [Unknown]
  - Productive cough [Unknown]
  - Hypotension [Unknown]
  - Myalgia [Unknown]
  - Renal failure [Not Recovered/Not Resolved]
  - Loss of consciousness [Unknown]
  - Rhabdomyolysis [Fatal]
  - Mobility decreased [Unknown]
  - Respiratory failure [Fatal]
  - Urinary retention [Unknown]
  - Gait disturbance [Unknown]
  - Pain in extremity [Unknown]

NARRATIVE: CASE EVENT DATE: 20200330
